FAERS Safety Report 11467431 (Version 1)
Quarter: 2015Q3

REPORT INFORMATION
  Report Type: Spontaneous
  Country: US (occurrence: None)
  Receive Date: 20150903
  Receipt Date: 20150903
  Transmission Date: 20151125
  Serious: Yes (Other)
  Sender: FDA-Public Use
  Company Number: None

PATIENT
  Age: 60 Year
  Sex: Male
  Weight: 125.19 kg

DRUGS (1)
  1. TOUJEO [Suspect]
     Active Substance: INSULIN GLARGINE
     Indication: TYPE 2 DIABETES MELLITUS
     Dosage: 70 UNITS
     Route: 058
     Dates: start: 20150625, end: 20150818

REACTIONS (4)
  - Weight decreased [None]
  - Fluid retention [None]
  - Therapy cessation [None]
  - Oedema peripheral [None]

NARRATIVE: CASE EVENT DATE: 20150818
